FAERS Safety Report 16401521 (Version 3)
Quarter: 2020Q1

REPORT INFORMATION
  Report Type: Spontaneous
  Country: US (occurrence: US)
  Receive Date: 20190606
  Receipt Date: 20200304
  Transmission Date: 20200409
  Serious: No
  Sender: FDA-Public Use
  Company Number: US-PTC THERAPEUTICS, INC.-US-2019PTC000720

PATIENT
  Sex: Male
  Weight: 69.84 kg

DRUGS (3)
  1. EMFLAZA [Suspect]
     Active Substance: DEFLAZACORT
     Indication: MUSCULAR DYSTROPHY
     Dosage: 36 MG, ON SATURDAY AND SUNDAY
     Route: 048
     Dates: start: 20190322
  2. EMFLAZA [Suspect]
     Active Substance: DEFLAZACORT
     Dosage: 36 MG, ON SATURDAY AND SUNDAY
     Route: 048
     Dates: start: 20190326
  3. EMFLAZA [Suspect]
     Active Substance: DEFLAZACORT
     Dosage: 36 MG, EVERY SATURDAY AND SUNDAY
     Route: 048

REACTIONS (4)
  - Somnolence [Unknown]
  - Headache [Unknown]
  - Feeling drunk [Unknown]
  - Off label use [Unknown]
